FAERS Safety Report 18942777 (Version 2)
Quarter: 2021Q1

REPORT INFORMATION
  Report Type: Report from Study
  Country: JP (occurrence: JP)
  Receive Date: 20210225
  Receipt Date: 20210324
  Transmission Date: 20210420
  Serious: Yes (Life-Threatening, Hospitalization, Other)
  Sender: FDA-Public Use
  Company Number: JP-BRISTOL-MYERS SQUIBB COMPANY-BMS-2020-031473

PATIENT
  Age: 70 Year
  Sex: Male
  Weight: 66.5 kg

DRUGS (2)
  1. NIVOLUMAB [Suspect]
     Active Substance: NIVOLUMAB
     Indication: PLEURAL MESOTHELIOMA MALIGNANT
     Dosage: 240 MILLIGRAM
     Route: 041
     Dates: start: 20200117, end: 20200313
  2. ALIMTA [Concomitant]
     Active Substance: PEMETREXED DISODIUM
     Indication: CENTRAL NERVOUS SYSTEM LYMPHOMA
     Dosage: 650 MILLIGRAM, EVERY DAY
     Route: 041
     Dates: start: 20200424

REACTIONS (5)
  - Hypothyroidism [Not Recovered/Not Resolved]
  - Addison^s disease [Recovered/Resolved]
  - Hyperthyroidism [Recovering/Resolving]
  - Intentional product use issue [Unknown]
  - Septic shock [Recovered/Resolved]

NARRATIVE: CASE EVENT DATE: 20200313
